FAERS Safety Report 7682063-3 (Version None)
Quarter: 2011Q3

REPORT INFORMATION
  Report Type: 
  Country: None (occurrence: None)
  Receive Date: 20110810
  Receipt Date: 20110803
  Transmission Date: 20111222
  Serious: Yes (Hospitalization)
  Sender: FDA-Public Use
  Company Number: DSA_47219_2011

PATIENT
  Age: 63 Year
  Sex: Male

DRUGS (6)
  1. DILTIAZEM [Concomitant]
  2. TUITRIORIUM BROMIDE [Concomitant]
  3. FENOTEROL W/IPRATROPIUM [Concomitant]
  4. ENALAPRIL MALEATE [Suspect]
     Indication: HYPERTENSION
     Dosage: (20 MG QD ORAL)
     Route: 048
  5. ANUBIOGTKKUBE [Concomitant]
  6. FKYTUCASONE W/SALMETEROL [Concomitant]

REACTIONS (7)
  - SWOLLEN TONGUE [None]
  - BLOOD OSMOLARITY INCREASED [None]
  - ASPHYXIA [None]
  - HAEMATOCRIT INCREASED [None]
  - HAEMOGLOBIN INCREASED [None]
  - HAEMOCONCENTRATION [None]
  - ANGIOEDEMA [None]
